FAERS Safety Report 19722828 (Version 1)
Quarter: 2021Q3

REPORT INFORMATION
  Report Type: Spontaneous
  Country: DE (occurrence: DE)
  Receive Date: 20210819
  Receipt Date: 20210819
  Transmission Date: 20211014
  Serious: Yes (Hospitalization, Other)
  Sender: FDA-Public Use
  Company Number: DE-TEVA-2021-DE-1942224

PATIENT
  Age: 85 Year
  Sex: Male
  Weight: 92 kg

DRUGS (10)
  1. TORASEMID [Suspect]
     Active Substance: TORSEMIDE
     Dosage: 30 MILLIGRAM DAILY;  1?0?0?0
  2. PANTOPRAZOL [Concomitant]
     Active Substance: PANTOPRAZOLE SODIUM
     Dosage: 80 MILLIGRAM DAILY;  1?0?1?0
  3. CALCIUM?POLYSTYROLCODIVINYLBENZOLSULFONSAURE [Suspect]
     Active Substance: CALCIUM POLYSTYRENE SULFONATE
     Dosage: 1 DOSAGE FORMS DAILY; 1?0?0?0
  4. LEVOTHYROXINE NATRIUM [Concomitant]
     Dosage: 150 MICROGRAM DAILY; 1?0?0?0
  5. BISOPROLOL [Concomitant]
     Active Substance: BISOPROLOL
     Dosage: 2.5 MILLIGRAM DAILY; 1?0?0?0
  6. CLOPIDOGREL [Concomitant]
     Active Substance: CLOPIDOGREL BISULFATE
     Dosage: 75 MILLIGRAM DAILY; 1?0?0?0
  7. ATORVASTATIN [Concomitant]
     Active Substance: ATORVASTATIN
     Dosage: 20 MILLIGRAM DAILY; 0?0?1?0
  8. ACETYLSALICYLSAURE [Concomitant]
     Active Substance: ASPIRIN
     Dosage: 100 MILLIGRAM DAILY;  1?0?0?0
  9. NATRIUMCARBONAT [Concomitant]
     Dosage: 1 MILLIGRAM DAILY; 1?0?0?0
  10. SITAGLIPTIN [Concomitant]
     Active Substance: SITAGLIPTIN
     Dosage: 25 MILLIGRAM DAILY; 1?0?0?0

REACTIONS (5)
  - Electrocardiogram abnormal [Unknown]
  - Anaemia [Unknown]
  - Abdominal pain [Unknown]
  - Constipation [Unknown]
  - Renal impairment [Unknown]
